FAERS Safety Report 7432084-0 (Version None)
Quarter: 2011Q2

REPORT INFORMATION
  Report Type: 
  Country: None (occurrence: None)
  Receive Date: 20110422
  Receipt Date: 20110412
  Transmission Date: 20111010
  Serious: Yes (Hospitalization)
  Sender: FDA-Public Use
  Company Number: JP-JNJFOC-20110312356

PATIENT
  Sex: Female
  Weight: 39 kg

DRUGS (9)
  1. ITRIZOLE [Concomitant]
     Route: 048
  2. BASEN [Concomitant]
     Route: 048
  3. ITRIZOLE [Suspect]
     Indication: PULMONARY NECROSIS
     Route: 041
  4. ITRIZOLE [Suspect]
     Indication: BRONCHOPULMONARY ASPERGILLOSIS
     Route: 041
  5. ADONA [Concomitant]
     Route: 065
  6. NOVORAPID [Concomitant]
     Route: 065
  7. ITRIZOLE [Concomitant]
     Route: 048
  8. CALTAN [Concomitant]
     Route: 048
  9. AMLODIN [Concomitant]
     Route: 048

REACTIONS (4)
  - RESPIRATORY FAILURE [None]
  - INTERSTITIAL LUNG DISEASE [None]
  - NAUSEA [None]
  - PYREXIA [None]
